FAERS Safety Report 6566139-X (Version None)
Quarter: 2010Q1

REPORT INFORMATION
  Report Type: 
  Country: None (occurrence: None)
  Receive Date: 20100202
  Receipt Date: 20100125
  Transmission Date: 20100710
  Serious: Yes (Other)
  Sender: FDA-Public Use
  Company Number: US-JNJFOC-20100110857

PATIENT
  Sex: Female

DRUGS (2)
  1. LEVAQUIN [Suspect]
     Indication: DRUG USE FOR UNKNOWN INDICATION
     Route: 065
  2. COZAAR [Concomitant]
     Route: 065

REACTIONS (6)
  - ABASIA [None]
  - ADVERSE DRUG REACTION [None]
  - OEDEMA PERIPHERAL [None]
  - SHOULDER ARTHROPLASTY [None]
  - SWELLING FACE [None]
  - TENDON DISORDER [None]
